FAERS Safety Report 16952687 (Version 1)
Quarter: 2019Q4

REPORT INFORMATION
  Report Type: Spontaneous
  Country: US (occurrence: US)
  Receive Date: 20190904
  Receipt Date: 20190904
  Transmission Date: 20200122
  Serious: No
  Sender: FDA-Public Use
  Company Number: None

PATIENT
  Age: 56 Year
  Sex: Female
  Weight: 59.42 kg

DRUGS (2)
  1. SOFOSBUVIR /VELPATASVIR [Suspect]
     Active Substance: SOFOSBUVIR\VELPATASVIR
     Indication: HEPATITIS VIRAL
     Dates: start: 20190815
  2. SOFOSBUVIR /VELPATASVIR [Suspect]
     Active Substance: SOFOSBUVIR\VELPATASVIR
     Indication: HEPATITIS C
     Dates: start: 20190815

REACTIONS (8)
  - Paraesthesia [None]
  - Chest discomfort [None]
  - Depressed mood [None]
  - Feeling abnormal [None]
  - Peripheral swelling [None]
  - Hypoaesthesia [None]
  - Abdominal pain upper [None]
  - Rash erythematous [None]

NARRATIVE: CASE EVENT DATE: 20190824
